FAERS Safety Report 5600258-7 (Version None)
Quarter: 2008Q1

REPORT INFORMATION
  Report Type: 
  Country: None (occurrence: None)
  Receive Date: 20080123
  Receipt Date: 20080117
  Transmission Date: 20080703
  Serious: Yes (Other)
  Sender: FDA-Public Use
  Company Number: US-JNJFOC-20080104999

PATIENT
  Age: 53 Year
  Sex: Female
  Weight: 78.47 kg

DRUGS (5)
  1. LEVAQUIN [Suspect]
     Indication: UPPER RESPIRATORY TRACT INFECTION
     Route: 048
  2. INSULIN [Concomitant]
     Route: 065
  3. AMARYL [Concomitant]
     Route: 048
  4. COZAAR [Concomitant]
     Route: 048
  5. ATENOLOL [Concomitant]
     Route: 048

REACTIONS (3)
  - ASTHENIA [None]
  - MUSCULAR WEAKNESS [None]
  - MUSCULOSKELETAL PAIN [None]
